FAERS Safety Report 15478070 (Version 1)
Quarter: 2018Q4

REPORT INFORMATION
  Report Type: Spontaneous
  Country: US (occurrence: US)
  Receive Date: 20181002
  Receipt Date: 20181002
  Transmission Date: 20190205
  Serious: Yes (Other)
  Sender: FDA-Public Use
  Company Number: None

PATIENT
  Age: 53 Year
  Sex: Male
  Weight: 101.25 kg

DRUGS (8)
  1. NORCO [Concomitant]
     Active Substance: ACETAMINOPHEN\HYDROCODONE BITARTRATE
  2. FINASTERIDE. [Concomitant]
     Active Substance: FINASTERIDE
     Dosage: ?          QUANTITY:1 TABLET(S);?
     Route: 048
     Dates: start: 20180925, end: 20180930
  3. ALLOPURINOL. [Concomitant]
     Active Substance: ALLOPURINOL
  4. METROPOLOL [Concomitant]
     Active Substance: METOPROLOL
  5. PRAVASTATIN. [Concomitant]
     Active Substance: PRAVASTATIN
  6. LOW DOSE ASPIRIN [Concomitant]
     Active Substance: ASPIRIN
  7. FLOMAX [Suspect]
     Active Substance: TAMSULOSIN HYDROCHLORIDE
     Indication: PROSTATOMEGALY
     Dosage: ?          QUANTITY:1 CAPSULE(S);?
     Route: 048
     Dates: start: 20180925, end: 20180930
  8. FLECANIDE [Concomitant]
     Active Substance: FLECAINIDE

REACTIONS (2)
  - Retrograde ejaculation [None]
  - Product complaint [None]

NARRATIVE: CASE EVENT DATE: 20181001
